FAERS Safety Report 9341248 (Version 1)
Quarter: 2013Q2

REPORT INFORMATION
  Report Type: Spontaneous
  Country: FR (occurrence: FR)
  Receive Date: 20130611
  Receipt Date: 20130611
  Transmission Date: 20140414
  Serious: Yes (Hospitalization)
  Sender: FDA-Public Use
  Company Number: FR-ASTRAZENECA-2013SE40270

PATIENT
  Age: 99 Year
  Sex: Female

DRUGS (5)
  1. INEXIUM [Suspect]
     Route: 048
     Dates: start: 20130405, end: 20130409
  2. BACTRIM FORTE [Suspect]
     Route: 048
     Dates: start: 20130327, end: 20130406
  3. FUNGIZONE [Suspect]
     Route: 048
     Dates: start: 20130406, end: 20130409
  4. LOVENOX [Concomitant]
     Dates: start: 20130301, end: 20130404
  5. COLCHIMAX [Concomitant]
     Dates: start: 20130330, end: 20130404

REACTIONS (1)
  - Thrombocytopenic purpura [Recovered/Resolved]
